FAERS Safety Report 10690716 (Version 1)
Quarter: 2015Q1

REPORT INFORMATION
  Report Type: Spontaneous
  Country: US (occurrence: US)
  Receive Date: 20150105
  Receipt Date: 20150105
  Transmission Date: 20150720
  Serious: No
  Sender: FDA-Public Use
  Company Number: US-TEVA-531818USA

PATIENT
  Sex: Female

DRUGS (1)
  1. COPAXONE [Suspect]
     Active Substance: GLATIRAMER ACETATE
     Indication: MULTIPLE SCLEROSIS
     Dosage: UNKNOWN FORM STRENGTH

REACTIONS (7)
  - Malaise [Unknown]
  - Urticaria [Unknown]
  - Lip swelling [Unknown]
  - Injection site reaction [Unknown]
  - Injection site urticaria [Unknown]
  - Pruritus [Unknown]
  - Back pain [Unknown]
